FAERS Safety Report 6980420-1 (Version None)
Quarter: 2010Q3

REPORT INFORMATION
  Report Type: 
  Country: None (occurrence: None)
  Receive Date: 20100914
  Receipt Date: 20100414
  Transmission Date: 20110219
  Serious: No
  Sender: FDA-Public Use
  Company Number: US-ABBOTT-10P-163-0634069-00

PATIENT
  Sex: Male
  Weight: 43.584 kg

DRUGS (3)
  1. DEPAKOTE [Suspect]
     Indication: MIGRAINE
     Dosage: 125MG, 1 TAB IN THE MORNING AND 1 TAB AT NIGHT
     Dates: start: 20100210, end: 20100217
  2. DEPAKOTE [Suspect]
     Indication: CONVULSION PROPHYLAXIS
     Dosage: 125MG, 1 TAB IN MORNING AND 2 TABS AT NIGHT
     Dates: start: 20100217, end: 20100221
  3. DEPAKOTE [Suspect]
     Dosage: 125MG, 2 TABS IN MORNING AND 2 TABS AT NIGHT

REACTIONS (3)
  - ABNORMAL BEHAVIOUR [None]
  - ATTENTION DEFICIT/HYPERACTIVITY DISORDER [None]
  - WEIGHT INCREASED [None]
